FAERS Safety Report 8647798 (Version 2)
Quarter: 2013Q1

REPORT INFORMATION
  Report Type: Report from Study
  Country: GB (occurrence: GB)
  Receive Date: 20120703
  Receipt Date: 20130328
  Transmission Date: 20140127
  Serious: Yes (Other)
  Sender: FDA-Public Use
  Company Number: GB-ROCHE-1082940

PATIENT
  Age: 61 Year
  Sex: Male

DRUGS (2)
  1. RITUXIMAB [Suspect]
     Indication: PRODUCT USED FOR UNKNOWN INDICATION
     Route: 065
     Dates: start: 20090518
  2. METHOTREXATE [Concomitant]

REACTIONS (1)
  - Non-small cell lung cancer [Not Recovered/Not Resolved]
